FAERS Safety Report 10496625 (Version 2)
Quarter: 2014Q4

REPORT INFORMATION
  Report Type: Spontaneous
  Country: US (occurrence: US)
  Receive Date: 20141005
  Receipt Date: 20141020
  Transmission Date: 20150528
  Serious: Yes (Hospitalization)
  Sender: FDA-Public Use
  Company Number: US-BRISTOL-MYERS SQUIBB COMPANY-21451885

PATIENT
  Age: 88 Year
  Sex: Male

DRUGS (1)
  1. SPRYCEL [Suspect]
     Active Substance: DASATINIB
     Dosage: 100MG TABLET
     Route: 048

REACTIONS (5)
  - Abdominal pain [Unknown]
  - Blood potassium decreased [Unknown]
  - Asthenia [Unknown]
  - Faecal incontinence [Unknown]
  - Cardiac arrest [Unknown]
